FAERS Safety Report 4971357-8 (Version None)
Quarter: 2006Q2

REPORT INFORMATION
  Report Type: 
  Country: None (occurrence: None)
  Receive Date: 20060413
  Receipt Date: 20060404
  Transmission Date: 20061013
  Serious: Yes (Other)
  Sender: FDA-Public Use
  Company Number: 2006AP01613

PATIENT
  Age: 83 Year
  Sex: Male

DRUGS (3)
  1. OMEPRAL [Suspect]
     Indication: UPPER GASTROINTESTINAL HAEMORRHAGE
     Route: 048
     Dates: start: 20060309
  2. FUTHAN [Suspect]
     Route: 041
     Dates: start: 20060311, end: 20060330
  3. ALLOID G [Concomitant]
     Route: 048
     Dates: start: 20060309

REACTIONS (3)
  - EOSINOPHIL COUNT INCREASED [None]
  - PYREXIA [None]
  - RASH [None]
